FAERS Safety Report 24734579 (Version 2)
Quarter: 2024Q4

REPORT INFORMATION
  Report Type: Report from Study
  Country: EG (occurrence: EG)
  Receive Date: 20241214
  Receipt Date: 20241220
  Transmission Date: 20250115
  Serious: Yes (Hospitalization, Other)
  Sender: NOVARTIS
  Company Number: EG-002147023-NVSC2024EG231770

PATIENT
  Age: 61 Year
  Sex: Female
  Weight: 85 kg

DRUGS (7)
  1. ENTRESTO [Suspect]
     Active Substance: SACUBITRIL\VALSARTAN
     Indication: Cardiac failure
     Dosage: 100 MG, BID (HALF TABLET TWICE DAILY)
     Route: 048
     Dates: start: 202402, end: 20240910
  2. ENTRESTO [Suspect]
     Active Substance: SACUBITRIL\VALSARTAN
     Dosage: 50 MG, BID HALF TABLET TWICE DAILY
     Route: 048
     Dates: start: 20240910
  3. NEBIVOLOL HYDROCHLORIDE [Concomitant]
     Active Substance: NEBIVOLOL HYDROCHLORIDE
     Indication: Hypertension
     Dosage: 5 MG, BID
     Route: 048
     Dates: start: 20241009
  4. BISOPROLOL FUMARATE [Concomitant]
     Active Substance: BISOPROLOL FUMARATE
     Indication: Hypertension
     Dosage: 10 MG, QD (TABLET)
     Route: 048
  5. MIXTARD HUMAN 70/30 [Concomitant]
     Active Substance: INSULIN HUMAN
     Indication: Diabetes mellitus
     Dosage: 30 OR 25 UNITS DAILY (SOLUTION FOR INJECTION)
     Route: 058
  6. ACTRAPID [Concomitant]
     Active Substance: INSULIN HUMAN
     Indication: Diabetes mellitus
     Dosage: 30 OR 25 UNITS DAILY (SOLUTION FOR INJECTION)
     Route: 048
  7. Cal mag [Concomitant]
     Indication: Product used for unknown indication
     Dosage: UNK (TABLET)
     Route: 048

REACTIONS (7)
  - Hyperkalaemia [Recovered/Resolved]
  - Oedema [Recovered/Resolved]
  - Nephropathy [Unknown]
  - Wrong technique in product usage process [Not Recovered/Not Resolved]
  - Liver disorder [Unknown]
  - Off label use [Not Recovered/Not Resolved]
  - Thyroid disorder [Recovering/Resolving]

NARRATIVE: CASE EVENT DATE: 20240201
